FAERS Safety Report 17113688 (Version 4)
Quarter: 2020Q4

REPORT INFORMATION
  Report Type: Report from Study
  Country: IT (occurrence: IT)
  Receive Date: 20191205
  Receipt Date: 20201014
  Transmission Date: 20210113
  Serious: Yes (Hospitalization)
  Sender: FDA-Public Use
  Company Number: IT-ROCHE-2486927

PATIENT
  Age: 61 Year
  Sex: Female

DRUGS (14)
  1. ROCEFIN [Concomitant]
     Active Substance: CEFTRIAXONE SODIUM
     Indication: GASTROENTERITIS
     Route: 042
     Dates: start: 20191125, end: 20191128
  2. COBIMETINIB. [Suspect]
     Active Substance: COBIMETINIB
     Indication: MALIGNANT MELANOMA
     Dosage: DATE OF LAST DOSE (60 MG) OF COBIMETINIB PRIOR TO AE/SAE ONSET: 24/NOV/2019.?ON DAYS 1-21 OF EACH 28
     Route: 048
     Dates: start: 20191015
  3. VEMURAFENIB. [Suspect]
     Active Substance: VEMURAFENIB
     Indication: MALIGNANT MELANOMA
     Dosage: DATE OF LAST DOSE (1920 MG) OF VEMURAFENIB PRIOR TO AE/SAE ONSET: 25/NOV/2019.?ON DAYS 22-28 OF CYCL
     Route: 048
     Dates: start: 20191015
  4. METOCLOPRAMIDE. [Concomitant]
     Active Substance: METOCLOPRAMIDE
     Indication: VOMITING
     Route: 048
     Dates: start: 20191116
  5. DESAMETASONE [Concomitant]
     Active Substance: DEXAMETHASONE
     Indication: ASTHENIA
     Route: 048
  6. ATEZOLIZUMAB. [Suspect]
     Active Substance: ATEZOLIZUMAB
     Indication: MALIGNANT MELANOMA
     Dosage: DATE OF LAST DOSE (840 MG) OF ATEZOLIZUMAB PRIOR TO AE/SAE ONSET: 11/NOV/2019 AT 14:10?ON DAYS 1 AND
     Route: 041
     Dates: start: 20191111
  7. ATORVASTATINE [Concomitant]
     Active Substance: ATORVASTATIN
     Indication: HYPERCHOLESTEROLAEMIA
     Route: 048
  8. LOPERAMIDE [Concomitant]
     Active Substance: LOPERAMIDE
     Indication: DIARRHOEA
     Route: 048
     Dates: start: 20200224, end: 20200225
  9. ALBUMIN [Concomitant]
     Active Substance: ALBUMIN HUMAN
     Indication: GASTROENTERITIS
     Dosage: 2 AMPULE
     Route: 042
     Dates: start: 20191125, end: 20191128
  10. ESOMEPRAZOLE. [Concomitant]
     Active Substance: ESOMEPRAZOLE MAGNESIUM
     Indication: HIATUS HERNIA
     Route: 048
  11. SALINE [Concomitant]
     Active Substance: SODIUM CHLORIDE
     Indication: GASTROENTERITIS
     Route: 042
     Dates: start: 20191125, end: 20191128
  12. CETIRIZINA [Concomitant]
     Active Substance: CETIRIZINE HYDROCHLORIDE
     Indication: PRURITUS
     Route: 048
     Dates: start: 20191105
  13. FLURAZEPAM [Concomitant]
     Active Substance: FLURAZEPAM HYDROCHLORIDE
     Indication: INSOMNIA
     Route: 048
  14. LOPERAMIDE [Concomitant]
     Active Substance: LOPERAMIDE
     Indication: GASTROENTERITIS
     Route: 048
     Dates: start: 20191125

REACTIONS (1)
  - Gastroenteritis [Recovered/Resolved]

NARRATIVE: CASE EVENT DATE: 20191121
